FAERS Safety Report 21392829 (Version 3)
Quarter: 2022Q4

REPORT INFORMATION
  Report Type: Spontaneous
  Country: US (occurrence: US)
  Receive Date: 20220929
  Receipt Date: 20221123
  Transmission Date: 20230113
  Serious: No
  Sender: FDA-Public Use
  Company Number: US-SA-SAC20220928000902

PATIENT
  Age: 2 Year
  Sex: Male

DRUGS (1)
  1. DUPIXENT [Suspect]
     Active Substance: DUPILUMAB
     Indication: Dermatitis atopic
     Dosage: 300 MG, QM
     Route: 058

REACTIONS (6)
  - Eczema [Unknown]
  - Scab [Unknown]
  - Scratch [Unknown]
  - Crying [Unknown]
  - Rash [Unknown]
  - Product dose omission issue [Unknown]
